FAERS Safety Report 16778282 (Version 1)
Quarter: 2019Q3

REPORT INFORMATION
  Report Type: Spontaneous
  Country: AT (occurrence: AT)
  Receive Date: 20190905
  Receipt Date: 20190905
  Transmission Date: 20191005
  Serious: Yes (Hospitalization)
  Sender: FDA-Public Use
  Company Number: AT-ABBVIE-19K-009-2911159-00

PATIENT
  Age: 27 Year
  Sex: Female

DRUGS (4)
  1. HUMIRA [Suspect]
     Active Substance: ADALIMUMAB
     Route: 058
     Dates: start: 201509, end: 201602
  2. HUMIRA [Suspect]
     Active Substance: ADALIMUMAB
     Route: 058
     Dates: start: 201309, end: 201407
  3. HUMIRA [Suspect]
     Active Substance: ADALIMUMAB
     Indication: CROHN^S DISEASE
     Route: 058
     Dates: start: 201210, end: 201307
  4. HUMIRA [Suspect]
     Active Substance: ADALIMUMAB
     Route: 058
     Dates: start: 201409, end: 201411

REACTIONS (7)
  - Colonic fistula [Unknown]
  - Impetigo [Unknown]
  - Crohn^s disease [Recovered/Resolved]
  - Crohn^s disease [Unknown]
  - Drug ineffective [Unknown]
  - Drug specific antibody [Unknown]
  - Diarrhoea [Unknown]

NARRATIVE: CASE EVENT DATE: 201307
